FAERS Safety Report 4488069-X (Version None)
Quarter: 2004Q4

REPORT INFORMATION
  Report Type: 
  Country: None (occurrence: None)
  Receive Date: 20041028
  Receipt Date: 20040917
  Transmission Date: 20050328
  Serious: Yes (Other)
  Sender: FDA-Public Use
  Company Number: CH-GLAXOSMITHKLINE-B0346244A

PATIENT
  Age: 76 Year
  Sex: Male

DRUGS (2)
  1. DEROXAT [Suspect]
     Indication: DEPRESSION
     Dosage: 20MG PER DAY
     Route: 048
     Dates: start: 20040827, end: 20040915
  2. PRADIF [Concomitant]
     Dosage: 400MG PER DAY
     Route: 048
     Dates: start: 20040101

REACTIONS (4)
  - ABDOMINAL PAIN UPPER [None]
  - DRY MOUTH [None]
  - URINARY RETENTION [None]
  - URINE FLOW DECREASED [None]
